FAERS Safety Report 9356178 (Version 1)
Quarter: 2013Q2

REPORT INFORMATION
  Report Type: Spontaneous
  Country: GB (occurrence: None)
  Receive Date: 20130614
  Receipt Date: 20130614
  Transmission Date: 20140414
  Serious: Yes (Life-Threatening, Hospitalization, Other)
  Sender: FDA-Public Use
  Company Number: CL-495-2013

PATIENT
  Age: 20 Year
  Sex: Female

DRUGS (6)
  1. ONDANSETRON [Suspect]
     Indication: NAUSEA
     Dosage: 5 TIMES A DAY
     Route: 042
     Dates: start: 20110911, end: 20130911
  2. ONDANSETRON [Suspect]
     Indication: VOMITING
     Dosage: 5 TIMES A DAY
     Route: 042
     Dates: start: 20110911, end: 20130911
  3. AZITHROMYCIN [Suspect]
     Indication: PNEUMONIA
     Route: 042
     Dates: start: 20110911, end: 20131113
  4. CEFEPIME [Concomitant]
  5. CEFTRIAXONE [Concomitant]
  6. LINEZOLID [Concomitant]

REACTIONS (12)
  - Cardiac arrest [None]
  - Ventricular fibrillation [None]
  - Bradycardia [None]
  - Hypotension [None]
  - Ventricular tachycardia [None]
  - Drug interaction [None]
  - Pulseless electrical activity [None]
  - Mydriasis [None]
  - Decerebrate posture [None]
  - Brain injury [None]
  - Hypoxic-ischaemic encephalopathy [None]
  - Ischaemic hepatitis [None]
